FAERS Safety Report 8757845 (Version 5)
Quarter: 2013Q3

REPORT INFORMATION
  Report Type: Report from Study
  Country: JP (occurrence: JP)
  Receive Date: 20120828
  Receipt Date: 20130729
  Transmission Date: 20140515
  Serious: Yes (Hospitalization)
  Sender: FDA-Public Use
  Company Number: JP-VERTEX PHARMACEUTICAL INC.-2012-020187

PATIENT
  Age: 64 Year
  Sex: Female

DRUGS (14)
  1. VX-950 (TELAPREVIR) [Suspect]
     Indication: CHRONIC HEPATITIS C
     Dosage: 1500 MG, QD
     Route: 048
     Dates: start: 20120628, end: 20120815
  2. RIBAVIRIN [Suspect]
     Indication: CHRONIC HEPATITIS C
     Dosage: 400 MG, QD
     Route: 048
     Dates: start: 20120628, end: 20120717
  3. RIBAVIRIN [Suspect]
     Dosage: 200 MG, QD
     Route: 048
     Dates: start: 20120718, end: 20120918
  4. RIBAVIRIN [Suspect]
     Dosage: 400 MG, QD
     Route: 048
     Dates: start: 20120919, end: 20130402
  5. RIBAVIRIN [Suspect]
     Dosage: 600 MG, QD
     Route: 048
     Dates: start: 20130403, end: 20130625
  6. RIBAVIRIN [Suspect]
     Dosage: 400 MG, QD
     Route: 048
     Dates: start: 20130626
  7. PEGINTRON [Suspect]
     Indication: CHRONIC HEPATITIS C
     Dosage: 0.7 ?G/KG, QW
     Route: 058
     Dates: start: 20120628
  8. BAYASPIRIN [Concomitant]
     Dosage: 100 MG, QD
     Route: 048
  9. AMLODIN OD [Concomitant]
     Dosage: 5 MG, QD
     Route: 048
  10. PARIET [Concomitant]
     Dosage: 10 MG, QD
     Route: 048
  11. LENDORMIN [Concomitant]
     Dosage: 0.25 MG, QD
     Route: 048
  12. CELECOX [Concomitant]
     Dosage: 200 MG, QD
     Route: 048
  13. OPALMON [Concomitant]
     Dosage: 15 MG, QD
     Route: 048
  14. URSO [Concomitant]
     Dosage: 900 MG, QD
     Route: 048

REACTIONS (1)
  - Blood creatinine increased [Recovered/Resolved]
